FAERS Safety Report 7370127-3 (Version None)
Quarter: 2011Q1

REPORT INFORMATION
  Report Type: 
  Country: None (occurrence: None)
  Receive Date: 20110323
  Receipt Date: 20110310
  Transmission Date: 20110831
  Serious: Yes (Other)
  Sender: FDA-Public Use
  Company Number: PHHY2011FR05193

PATIENT
  Sex: Female

DRUGS (13)
  1. ALDACTONE [Concomitant]
     Dosage: 75 MG, QD
  2. GAVISCON [Concomitant]
     Dosage: 1 DF, TID
  3. DEXERYL [Concomitant]
  4. FOSAVANCE [Suspect]
  5. KALEORID [Concomitant]
  6. COLCHICINE [Concomitant]
     Dosage: 1 MG, TID
  7. PROTELOS (STRONTIUM RANELATE) [Suspect]
  8. ADENURIC [Concomitant]
     Dosage: 80 MG, QD
  9. STILNOX [Concomitant]
     Dosage: 10 MG, QD
  10. ACLASTA [Suspect]
     Indication: OSTEOPOROSIS
     Route: 042
  11. POTASSIUM CHLORIDE [Concomitant]
  12. ACTONEL [Suspect]
  13. DICLOFENAC [Concomitant]
     Dosage: 75 MG, QD

REACTIONS (8)
  - BONE ATROPHY [None]
  - PAIN IN JAW [None]
  - PAIN [None]
  - IMPLANT SITE PAIN [None]
  - DENTAL IMPLANTATION [None]
  - OSTEONECROSIS OF JAW [None]
  - PERIODONTITIS [None]
  - DEVICE FAILURE [None]
